FAERS Safety Report 10902366 (Version 3)
Quarter: 2015Q2

REPORT INFORMATION
  Report Type: Spontaneous
  Country: JP (occurrence: JP)
  Receive Date: 20150310
  Receipt Date: 20150527
  Transmission Date: 20150821
  Serious: Yes (Life-Threatening)
  Sender: FDA-Public Use
  Company Number: JP-SANTEN-201500173

PATIENT

DRUGS (12)
  1. CELECOX [Concomitant]
     Active Substance: CELECOXIB
  2. LYRICA [Concomitant]
     Active Substance: PREGABALIN
  3. CRAVIT [Suspect]
     Active Substance: LEVOFLOXACIN
     Indication: INFECTION PROPHYLAXIS
     Dosage: 1 GTT, QID
     Route: 047
     Dates: start: 20150128, end: 20150216
  4. RINDERON                           /00008501/ [Concomitant]
     Active Substance: BETAMETHASONE
     Dosage: UNK
     Dates: start: 20150128, end: 20150402
  5. ALLEGRA [Concomitant]
     Active Substance: FEXOFENADINE HYDROCHLORIDE
  6. ATORVASTATIN [Concomitant]
     Active Substance: ATORVASTATIN
  7. DICLOD [Concomitant]
     Active Substance: DICLOFENAC SODIUM
     Dosage: UNK
     Dates: start: 20150128, end: 20150216
  8. ADALAT [Concomitant]
     Active Substance: NIFEDIPINE
  9. DOXAZOSIN [Concomitant]
     Active Substance: DOXAZOSIN\DOXAZOSIN MESYLATE
  10. LOXONIN [Concomitant]
     Active Substance: LOXOPROFEN SODIUM
  11. CANDESARTAN CILEXETIL. [Concomitant]
     Active Substance: CANDESARTAN CILEXETIL
  12. ADALAT [Concomitant]
     Active Substance: NIFEDIPINE

REACTIONS (3)
  - Renal disorder [Recovered/Resolved]
  - Drug-induced liver injury [Recovered/Resolved]
  - Lung disorder [Recovered/Resolved]

NARRATIVE: CASE EVENT DATE: 20150131
